FAERS Safety Report 10219404 (Version 3)
Quarter: 2014Q3

REPORT INFORMATION
  Report Type: Spontaneous
  Country: US (occurrence: US)
  Receive Date: 20140605
  Receipt Date: 20140721
  Transmission Date: 20150326
  Serious: Yes (Death, Other)
  Sender: FDA-Public Use
  Company Number: CHPA2014US007670

PATIENT
  Age: 74 Year
  Sex: Male

DRUGS (1)
  1. MINERAL ICE PAIN RELIEVING [Suspect]
     Active Substance: MENTHOL
     Indication: ARTHRALGIA
     Dosage: UNK UNK, BID
     Route: 061

REACTIONS (2)
  - Diabetes mellitus [Unknown]
  - Death [Fatal]
